FAERS Safety Report 9871451 (Version 1)
Quarter: 2014Q1

REPORT INFORMATION
  Report Type: Spontaneous
  Country: BE (occurrence: BE)
  Receive Date: 20140205
  Receipt Date: 20140205
  Transmission Date: 20141002
  Serious: Yes (Other)
  Sender: FDA-Public Use
  Company Number: BE-UCBSA-111037

PATIENT
  Age: 50 Year
  Sex: Female

DRUGS (1)
  1. KEPPRA [Suspect]
     Route: 048

REACTIONS (1)
  - Glaucoma [Unknown]
